FAERS Safety Report 9437475 (Version 3)
Quarter: 2013Q3

REPORT INFORMATION
  Report Type: Spontaneous
  Country: PL (occurrence: PL)
  Receive Date: 20130802
  Receipt Date: 20130829
  Transmission Date: 20140515
  Serious: Yes (Hospitalization, Other)
  Sender: FDA-Public Use
  Company Number: PL-RANBAXY-2013RR-71723

PATIENT
  Age: 5 Year
  Sex: Male

DRUGS (1)
  1. CEFUROXIME [Suspect]
     Indication: PHARYNGITIS BACTERIAL
     Dosage: UNK
     Route: 065

REACTIONS (1)
  - Eosinophilic fasciitis [Recovering/Resolving]
